FAERS Safety Report 24089905 (Version 1)
Quarter: 2024Q3

REPORT INFORMATION
  Report Type: Spontaneous
  Country: GB (occurrence: GB)
  Receive Date: 20240715
  Receipt Date: 20240715
  Transmission Date: 20241016
  Serious: Yes (Other)
  Sender: TEVA
  Company Number: None

PATIENT
  Age: 80 Year
  Sex: Female

DRUGS (1)
  1. IMATINIB [Suspect]
     Active Substance: IMATINIB
     Indication: Product used for unknown indication
     Dosage: BATCH/LOT NUMBER: 1822093, 09/25

REACTIONS (4)
  - Incontinence [Recovered/Resolved with Sequelae]
  - Dry mouth [Recovered/Resolved]
  - Oral pain [Recovered/Resolved]
  - Muscle spasms [Recovered/Resolved with Sequelae]
